FAERS Safety Report 4390986-6 (Version None)
Quarter: 2004Q3

REPORT INFORMATION
  Report Type: 
  Country: None (occurrence: None)
  Receive Date: 20040701
  Receipt Date: 20040701
  Transmission Date: 20050211
  Serious: Yes (Hospitalization)
  Sender: FDA-Public Use
  Company Number: None

PATIENT
  Sex: Female
  Weight: 81.6475 kg

DRUGS (4)
  1. GEMCITABINE [Suspect]
     Indication: LUNG NEOPLASM MALIGNANT
     Dosage: 1950 MG DAY 1 + 8 IV
     Route: 042
     Dates: start: 20040616
  2. GEMCITABINE [Suspect]
     Indication: LUNG NEOPLASM MALIGNANT
     Dosage: 1950 MG DAY 1 + 8 IV
     Route: 042
     Dates: start: 20040623
  3. CARBOPLATIN [Suspect]
     Indication: LUNG NEOPLASM MALIGNANT
     Dosage: 800 MG DAY I  IV
     Route: 042
     Dates: start: 20040616
  4. COUMADIN [Concomitant]

REACTIONS (3)
  - EPISTAXIS [None]
  - HAEMORRHAGE [None]
  - PLATELET COUNT ABNORMAL [None]
